FAERS Safety Report 6296819-5 (Version None)
Quarter: 2009Q3

REPORT INFORMATION
  Report Type: 
  Country: None (occurrence: None)
  Receive Date: 20090804
  Receipt Date: 20090722
  Transmission Date: 20100115
  Serious: Yes (Hospitalization, Other)
  Sender: FDA-Public Use
  Company Number: PHHY2009US31462

PATIENT
  Age: 38 Year

DRUGS (11)
  1. CYCLOSPORINE [Suspect]
     Indication: LIVER TRANSPLANT
  2. SIROLIMUS [Concomitant]
     Indication: LIVER TRANSPLANT
  3. FK 506 [Concomitant]
     Indication: LIVER TRANSPLANT
  4. M.V.I. [Concomitant]
  5. CITALOPRAM [Concomitant]
  6. ALLOPURINOL [Concomitant]
  7. FUROSEMIDE [Concomitant]
  8. ASPIRIN [Concomitant]
  9. FEXOFENADINE [Concomitant]
  10. PANTOPRAZOLE SODIUM [Concomitant]
  11. ATACAND [Concomitant]

REACTIONS (9)
  - DEEP VEIN THROMBOSIS [None]
  - IMPAIRED HEALING [None]
  - INCISIONAL HERNIA [None]
  - INCISIONAL HERNIA REPAIR [None]
  - OSTEOPENIA [None]
  - RENAL FAILURE CHRONIC [None]
  - TYPE 2 DIABETES MELLITUS [None]
  - WOUND DECOMPOSITION [None]
  - WOUND DEHISCENCE [None]
